FAERS Safety Report 9200260 (Version 2)
Quarter: 2013Q2

REPORT INFORMATION
  Report Type: Report from Study
  Country: BG (occurrence: BG)
  Receive Date: 20130329
  Receipt Date: 20130404
  Transmission Date: 20140414
  Serious: Yes (Death)
  Sender: FDA-Public Use
  Company Number: BG-ASTRAZENECA-2013SE19870

PATIENT
  Age: 82 Year
  Sex: Male

DRUGS (7)
  1. SYMBICORT [Suspect]
     Indication: CHRONIC OBSTRUCTIVE PULMONARY DISEASE
     Dosage: 320 MCG/9 MCG ONE INHALATION TWO TIMES A DAY
     Route: 055
     Dates: start: 20111214, end: 20130305
  2. ONBREZ [Concomitant]
     Dates: start: 201209
  3. SALBUTAMOL [Concomitant]
     Dosage: AS NEEDED
  4. SPIRONOLACTONE [Concomitant]
  5. BISOGAMMA [Concomitant]
  6. PREDUCTAL [Concomitant]
  7. SIMVACOR [Concomitant]

REACTIONS (2)
  - Cardiac failure acute [Fatal]
  - Acute respiratory failure [Fatal]
